FAERS Safety Report 16915735 (Version 1)
Quarter: 2019Q4

REPORT INFORMATION
  Report Type: Spontaneous
  Country: GB (occurrence: GB)
  Receive Date: 20191014
  Receipt Date: 20191014
  Transmission Date: 20200122
  Serious: Yes (Other)
  Sender: FDA-Public Use
  Company Number: GB-MYLANLABS-2019M1096321

PATIENT
  Age: 20 Year
  Sex: Female
  Weight: 53.97 kg

DRUGS (7)
  1. ZAPAIN [Concomitant]
     Active Substance: ACETAMINOPHEN\CODEINE PHOSPHATE
     Dosage: 1 DOSAGE FORM, PRN
  2. QUETIAPINE. [Concomitant]
     Active Substance: QUETIAPINE
     Dosage: AT NIGHT.
  3. TRAMADOL. [Concomitant]
     Active Substance: TRAMADOL
     Dosage: VERY OCCASIONAL, NOT USED IN LAST MONTH.
  4. METHOTREXATE. [Concomitant]
     Active Substance: METHOTREXATE
     Dosage: 1 DOSAGE FORM, QW
     Route: 051
  5. CLOMIPRAMINE [Suspect]
     Active Substance: CLOMIPRAMINE
     Indication: OBSESSIVE-COMPULSIVE DISORDER
     Dosage: 25 MILLIGRAM
     Route: 048
     Dates: start: 20190620, end: 20190620
  6. DEPO-PROVERA [Concomitant]
     Active Substance: MEDROXYPROGESTERONE ACETATE
     Dosage: UNK
  7. ADALIMUMAB [Concomitant]
     Active Substance: ADALIMUMAB
     Dosage: 1 DOSAGE FORM, Q2W
     Route: 058

REACTIONS (4)
  - Wheezing [Recovered/Resolved]
  - Hypersensitivity [Recovered/Resolved]
  - Dyspnoea [Recovered/Resolved]
  - Burning sensation [Recovered/Resolved]

NARRATIVE: CASE EVENT DATE: 20190620
